FAERS Safety Report 15579697 (Version 1)
Quarter: 2018Q4

REPORT INFORMATION
  Report Type: Spontaneous
  Country: CH (occurrence: CH)
  Receive Date: 20181102
  Receipt Date: 20181102
  Transmission Date: 20190205
  Serious: Yes (Death, Hospitalization, Other)
  Sender: FDA-Public Use
  Company Number: CH-PFIZER INC-2018435144

PATIENT
  Age: 77 Year
  Sex: Female

DRUGS (5)
  1. CONCOR [Concomitant]
     Active Substance: BISOPROLOL FUMARATE
     Dosage: 5 MG (1/2-0-0)
     Route: 048
  2. METHOTREXATE SODIUM. [Suspect]
     Active Substance: METHOTREXATE SODIUM
     Indication: POLYARTHRITIS
     Dosage: UNK, AS NEEDED (DOSE ADJUSTED TO THE PAIN)
     Route: 048
  3. SORTIS [Concomitant]
     Active Substance: ATORVASTATIN
     Dosage: 40 MG, 1X/DAY (1-0-0)
     Route: 048
  4. ASPIRIN CARDIO [Concomitant]
     Active Substance: ASPIRIN
     Dosage: 100 MG, 1X/DAY (1-0-0)
     Route: 048
  5. VITALUX PLUS [Concomitant]
     Active Substance: VITAMINS
     Dosage: 1 DF, 1X/DAY (1-0-0)
     Route: 048

REACTIONS (2)
  - Hepatic cirrhosis [Fatal]
  - Pancytopenia [Fatal]

NARRATIVE: CASE EVENT DATE: 20181003
